FAERS Safety Report 7392365-6 (Version None)
Quarter: 2011Q1

REPORT INFORMATION
  Report Type: 
  Country: None (occurrence: None)
  Receive Date: 20110330
  Receipt Date: 20110330
  Transmission Date: 20110831
  Serious: No
  Sender: FDA-Public Use
  Company Number: None

PATIENT
  Age: 55 Year
  Sex: Female

DRUGS (1)
  1. LODINE [Suspect]
     Dosage: } 7 MONTH
     Dates: start: 20090125, end: 20090914

REACTIONS (5)
  - RASH [None]
  - JAUNDICE [None]
  - LIVER INJURY [None]
  - CHOLELITHIASIS [None]
  - PRURITUS [None]
